FAERS Safety Report 8321456-8 (Version None)
Quarter: 2012Q2

REPORT INFORMATION
  Report Type: 
  Country: None (occurrence: None)
  Receive Date: 20120430
  Receipt Date: 20120424
  Transmission Date: 20120825
  Serious: Yes (Hospitalization)
  Sender: FDA-Public Use
  Company Number: US-PFIZER INC-2012101787

PATIENT
  Sex: Female
  Weight: 79.365 kg

DRUGS (13)
  1. NARDIL [Suspect]
     Indication: DEPRESSION
  2. ADVAIR DISKUS 100/50 [Suspect]
     Indication: ASTHMA
  3. PROAIR HFA [Suspect]
     Indication: DYSPNOEA
  4. ADVAIR DISKUS 100/50 [Suspect]
     Indication: HYPERSENSITIVITY
  5. PROAIR HFA [Suspect]
     Indication: BRONCHITIS CHRONIC
     Dosage: UNK
  6. ADVAIR DISKUS 100/50 [Suspect]
     Indication: BRONCHITIS
  7. PROAIR HFA [Suspect]
     Indication: HYPERSENSITIVITY
  8. XANAX [Concomitant]
     Dosage: UNK
  9. ADVAIR DISKUS 100/50 [Suspect]
     Indication: DYSPNOEA
  10. ADVAIR DISKUS 100/50 [Suspect]
     Indication: BRONCHITIS CHRONIC
     Dosage: UNK
  11. PROAIR HFA [Suspect]
     Indication: BRONCHITIS
  12. NARDIL [Suspect]
     Indication: PANIC DISORDER
     Dosage: 15 MG, 3X/DAY
     Route: 048
  13. PROAIR HFA [Suspect]
     Indication: ASTHMA

REACTIONS (7)
  - MEMORY IMPAIRMENT [None]
  - BLOOD GLUCOSE INCREASED [None]
  - HEADACHE [None]
  - HYPOTENSION [None]
  - CHRONIC OBSTRUCTIVE PULMONARY DISEASE [None]
  - OXYGEN SATURATION DECREASED [None]
  - SOMNOLENCE [None]
